FAERS Safety Report 13653963 (Version 1)
Quarter: 2017Q2

REPORT INFORMATION
  Report Type: Spontaneous
  Country: None (occurrence: US)
  Receive Date: 20170614
  Receipt Date: 20170614
  Transmission Date: 20170830
  Serious: No
  Sender: FDA-Public Use
  Company Number: US-XTTRIUM LABORATORIES, INC-2022039

PATIENT
  Sex: Female

DRUGS (1)
  1. CHLORHEXIDINE GLUCONATE. [Suspect]
     Active Substance: CHLORHEXIDINE GLUCONATE
     Indication: STOMATITIS
     Route: 002
     Dates: start: 20160626, end: 20160626

REACTIONS (4)
  - Abdominal discomfort [Unknown]
  - Oral discomfort [Unknown]
  - Dry mouth [Unknown]
  - Administration site inflammation [Unknown]

NARRATIVE: CASE EVENT DATE: 20160626
